FAERS Safety Report 4533603-4 (Version None)
Quarter: 2004Q4

REPORT INFORMATION
  Report Type: 
  Country: None (occurrence: None)
  Receive Date: 20041221
  Receipt Date: 20040716
  Transmission Date: 20050328
  Serious: Yes (Other)
  Sender: FDA-Public Use
  Company Number: PHNU2004DE02577

PATIENT
  Sex: Male
  Weight: 60 kg

DRUGS (8)
  1. SANDIMMUNE [Suspect]
     Indication: LIVER TRANSPLANT
     Dosage: UNK, UNK
     Route: 048
     Dates: end: 20040101
  2. SOLU DACORTIN H [Concomitant]
     Dosage: 4 MG, QD
     Route: 042
  3. FORTUM [Concomitant]
     Dosage: 2 G, BID
     Route: 042
  4. VANCOMYCIN [Concomitant]
     Dosage: 500 MG, QD
     Route: 042
  5. CYMEVEN [Concomitant]
     Dosage: 500 MG, QD
     Route: 042
  6. XANEF [Concomitant]
     Dosage: 5 MG, QD
     Route: 048
  7. CONCOR [Concomitant]
     Dosage: 2.5 MG, QD
     Route: 048
  8. NORVASC [Concomitant]
     Dosage: 5 MG, QD
     Route: 048

REACTIONS (3)
  - APRAXIA [None]
  - CEREBROVASCULAR DISORDER [None]
  - SPEECH DISORDER [None]
